FAERS Safety Report 11917846 (Version 1)
Quarter: 2016Q1

REPORT INFORMATION
  Report Type: Spontaneous
  Country: NL (occurrence: NL)
  Receive Date: 20160114
  Receipt Date: 20160114
  Transmission Date: 20160526
  Serious: Yes (Other)
  Sender: FDA-Public Use
  Company Number: NL-ROXANE LABORATORIES, INC.-2016-RO-00024RO

PATIENT
  Age: 56 Year
  Sex: Female

DRUGS (2)
  1. LITHIUM CARBONATE TABLETS USP, 300 MG [Suspect]
     Active Substance: LITHIUM CARBONATE
     Route: 065
  2. LITHIUM CARBONATE TABLETS USP, 300 MG [Suspect]
     Active Substance: LITHIUM CARBONATE
     Indication: BRIEF PSYCHOTIC DISORDER, WITH POSTPARTUM ONSET
     Route: 065

REACTIONS (1)
  - Renal failure [Unknown]
